FAERS Safety Report 24742575 (Version 1)
Quarter: 2024Q4

REPORT INFORMATION
  Report Type: Spontaneous
  Country: US (occurrence: US)
  Receive Date: 20241217
  Receipt Date: 20241217
  Transmission Date: 20250115
  Serious: Yes (Hospitalization, Other)
  Sender: JUBILANT
  Company Number: US-JUBILANT PHARMA LTD-2019US000981

PATIENT
  Age: 75 Year
  Sex: Male

DRUGS (2)
  1. LEVOFLOXACIN [Suspect]
     Active Substance: LEVOFLOXACIN
     Indication: Diverticulitis
     Dosage: 750 MG, ONCE PER DAY
     Route: 048
  2. METRONIDAZOLE [Concomitant]
     Active Substance: METRONIDAZOLE
     Indication: Diverticulitis
     Dosage: 2 MG, ONCE PER DAY

REACTIONS (4)
  - Muscle strain [Recovering/Resolving]
  - Haematoma [Recovering/Resolving]
  - Tendon disorder [Recovering/Resolving]
  - Toxicity to various agents [Recovering/Resolving]
